FAERS Safety Report 5234271-9 (Version None)
Quarter: 2007Q1

REPORT INFORMATION
  Report Type: 
  Country: None (occurrence: None)
  Receive Date: 20070209
  Receipt Date: 20070130
  Transmission Date: 20070707
  Serious: Yes (Other)
  Sender: FDA-Public Use
  Company Number: PHFR2007GB00515

PATIENT
  Age: 34 Year
  Sex: Male

DRUGS (1)
  1. CLOZARIL [Suspect]
     Indication: SCHIZOPHRENIA
     Dosage: 400MG DAILY
     Route: 048
     Dates: start: 20050901, end: 20070101

REACTIONS (6)
  - BLADDER OBSTRUCTION [None]
  - BLOOD COUNT ABNORMAL [None]
  - HYDRONEPHROSIS [None]
  - MENTAL IMPAIRMENT [None]
  - RENAL IMPAIRMENT [None]
  - URINARY RETENTION [None]
